FAERS Safety Report 5033036-0 (Version None)
Quarter: 2006Q2

REPORT INFORMATION
  Report Type: 
  Country: None (occurrence: None)
  Receive Date: 20060620
  Receipt Date: 20060603
  Transmission Date: 20061013
  Serious: Yes (Other)
  Sender: FDA-Public Use
  Company Number: US200606001653

PATIENT
  Age: 82 Year
  Sex: Female

DRUGS (2)
  1. FORTEO [Suspect]
     Dates: start: 20041001
  2. FORTEO [Concomitant]

REACTIONS (2)
  - SERUM SICKNESS [None]
  - SYSTEMIC LUPUS ERYTHEMATOSUS [None]
